FAERS Safety Report 11177682 (Version 2)
Quarter: 2015Q3

REPORT INFORMATION
  Report Type: Spontaneous
  Country: US (occurrence: US)
  Receive Date: 20150610
  Receipt Date: 20150722
  Transmission Date: 20151125
  Serious: No
  Sender: FDA-Public Use
  Company Number: US-PFIZER INC-2015192156

PATIENT
  Age: 64 Year
  Sex: Female
  Weight: 67 kg

DRUGS (1)
  1. GABAPENTIN. [Suspect]
     Active Substance: GABAPENTIN
     Indication: NEURALGIA
     Dosage: 300 MG, UNK (AT HS)
     Route: 048
     Dates: start: 20140420, end: 20150420

REACTIONS (1)
  - Drug ineffective for unapproved indication [Unknown]
